FAERS Safety Report 4364746-6 (Version None)
Quarter: 2004Q2

REPORT INFORMATION
  Report Type: 
  Country: None (occurrence: None)
  Receive Date: 20040526
  Receipt Date: 20040517
  Transmission Date: 20050107
  Serious: Yes (Disabling, Other)
  Sender: FDA-Public Use
  Company Number: PHEH2004US05503

PATIENT
  Age: 12 Year

DRUGS (1)
  1. ELIDEL [Suspect]
     Route: 061

REACTIONS (2)
  - INFECTION [None]
  - LEG AMPUTATION [None]
